FAERS Safety Report 8504346-7 (Version None)
Quarter: 2012Q3

REPORT INFORMATION
  Report Type: 
  Country: None (occurrence: None)
  Receive Date: 20120711
  Receipt Date: 20120628
  Transmission Date: 20120928
  Serious: No
  Sender: FDA-Public Use
  Company Number: US-009507513-1206USA05421

PATIENT

DRUGS (11)
  1. METOPROLOL TARTRATE [Concomitant]
     Dosage: 25 MG, UNK
  2. LORAZEPAM [Concomitant]
     Dosage: 1 MG, UNK
  3. LANTUS [Concomitant]
  4. METFORMIN HCL [Concomitant]
     Dosage: 1000 MG, UNK
  5. GLIMEPIRIDE [Concomitant]
     Dosage: 2 MG, UNK
  6. ACTOS [Concomitant]
     Dosage: 30 MG, PM
  7. UROXATRAL [Concomitant]
  8. ALLOPURINOL [Concomitant]
     Dosage: 300 MG, UNK
  9. JANUVIA [Suspect]
     Indication: DIVERTICULITIS
     Dosage: 100 MG, QD
     Route: 048
     Dates: start: 20080101
  10. FLAGYL [Concomitant]
     Indication: DIVERTICULITIS
     Dates: end: 20120622
  11. FINASTERIDE [Concomitant]
     Dosage: 5 MG, UNK

REACTIONS (3)
  - MUSCLE SPASMS [None]
  - DIARRHOEA [None]
  - MEDICATION RESIDUE [None]
